FAERS Safety Report 17874544 (Version 1)
Quarter: 2020Q2

REPORT INFORMATION
  Report Type: Spontaneous
  Country: US (occurrence: US)
  Receive Date: 20200609
  Receipt Date: 20200609
  Transmission Date: 20200714
  Serious: No
  Sender: FDA-Public Use
  Company Number: US-MYLANLABS-2020M1053624

PATIENT
  Sex: Female

DRUGS (1)
  1. LIDOCAINE PATCH [Suspect]
     Active Substance: LIDOCAINE
     Indication: MYALGIA
     Dosage: 5 PERCENT
     Route: 003

REACTIONS (3)
  - Prescription drug used without a prescription [Recovered/Resolved]
  - Drug ineffective for unapproved indication [Unknown]
  - Product adhesion issue [Not Recovered/Not Resolved]
